FAERS Safety Report 7926080-4 (Version None)
Quarter: 2011Q4

REPORT INFORMATION
  Report Type: 
  Country: None (occurrence: None)
  Receive Date: 20111118
  Receipt Date: 20110418
  Transmission Date: 20120403
  Serious: No
  Sender: FDA-Public Use
  Company Number: US-AMGEN-USASP2011020395

PATIENT
  Age: 65 Year
  Sex: Female

DRUGS (1)
  1. ENBREL [Suspect]
     Indication: RHEUMATOID ARTHRITIS
     Dosage: 50 MG, QWK
     Dates: start: 20100701

REACTIONS (7)
  - NERVOUSNESS [None]
  - HEADACHE [None]
  - NAUSEA [None]
  - INSOMNIA [None]
  - DEPRESSED MOOD [None]
  - CRYING [None]
  - ASTHENIA [None]
